FAERS Safety Report 17688017 (Version 1)
Quarter: 2020Q2

REPORT INFORMATION
  Report Type: Spontaneous
  Country: AU (occurrence: AU)
  Receive Date: 20200421
  Receipt Date: 20200421
  Transmission Date: 20200714
  Serious: Yes (Other)
  Sender: FDA-Public Use
  Company Number: AU-MYLANLABS-2020M1040447

PATIENT
  Age: 3 Decade
  Sex: Female

DRUGS (8)
  1. FENTANYL. [Suspect]
     Active Substance: FENTANYL
     Dosage: 2UG/ML. ADMINISTERED AS EPIDURAL INFUSION ..
     Route: 008
  2. FENTANYL. [Suspect]
     Active Substance: FENTANYL
     Indication: EPIDURAL ANAESTHESIA
     Dosage: 100 MICROGRAM
     Route: 008
     Dates: start: 2014, end: 2014
  3. EPINEPHRINE/LIDOCAINE HYDROCHLORIDE [Suspect]
     Active Substance: EPINEPHRINE\LIDOCAINE HYDROCHLORIDE
     Indication: EPIDURAL ANAESTHESIA
     Dosage: 10 MILLILITER, 10ML OF LIDOCAINE: EPINEPHRINE -..
     Route: 008
     Dates: start: 2014, end: 2014
  4. LIDOCAINE. [Suspect]
     Active Substance: LIDOCAINE
     Indication: EPIDURAL ANAESTHESIA
     Dosage: 6 MILLILITER,6ML OF LIDOCAINE: EPINEPHRINE...
     Route: 008
     Dates: start: 2016, end: 2016
  5. ROPIVACAINE. [Suspect]
     Active Substance: ROPIVACAINE HYDROCHLORIDE
     Indication: EPIDURAL ANAESTHESIA
     Dosage: ADMINISTERED AS EPIDURAL INFUSION OF ROPIVACAIN..
     Route: 008
  6. FENTANYL. [Suspect]
     Active Substance: FENTANYL
     Dosage: 100 MICROGRAM, AN INITIAL 4 ML TEST DOSE OF ..
     Route: 008
     Dates: start: 2016, end: 2016
  7. BUPIVACAINE. [Suspect]
     Active Substance: BUPIVACAINE
     Indication: EPIDURAL ANAESTHESIA
     Dosage: AN INITIAL 4 ML TEST DOSE OF THE SOLUTION ..
     Route: 008
     Dates: start: 2016, end: 2016
  8. SODIUM BICARBONATE. [Suspect]
     Active Substance: SODIUM BICARBONATE
     Indication: PRODUCT USED FOR UNKNOWN INDICATION
     Dosage: 2 MILLILITER
     Route: 008
     Dates: start: 2014, end: 2014

REACTIONS (4)
  - Peroneal nerve palsy [Recovered/Resolved]
  - Maternal exposure during delivery [Recovered/Resolved]
  - Condition aggravated [Recovering/Resolving]
  - Hereditary neuropathy with liability to pressure palsies [Recovering/Resolving]

NARRATIVE: CASE EVENT DATE: 2014
